FAERS Safety Report 5065727-X (Version None)
Quarter: 2006Q3

REPORT INFORMATION
  Report Type: 
  Country: None (occurrence: None)
  Receive Date: 20060725
  Receipt Date: 20060711
  Transmission Date: 20061208
  Serious: Yes (Hospitalization)
  Sender: FDA-Public Use
  Company Number: 2006085501

PATIENT
  Age: 42 Year
  Sex: Male

DRUGS (3)
  1. CELEBREX [Suspect]
     Indication: ARTHRALGIA
     Dosage: 200 MG 1 IN 1 D, ORAL
     Route: 048
     Dates: start: 20060101, end: 20060707
  2. MOBIC [Concomitant]
  3. OLFEN (DICLOFENAC SODIUM) [Concomitant]

REACTIONS (1)
  - ANAPHYLACTIC SHOCK [None]
